FAERS Safety Report 9522543 (Version 1)
Quarter: 2013Q1

REPORT INFORMATION
  Report Type: Spontaneous
  Country: US (occurrence: None)
  Receive Date: 20130305
  Receipt Date: 20130305
  Transmission Date: 20140127
  Serious: Yes (Other)
  Sender: FDA-Public Use
  Company Number: 163-21880-12011804

PATIENT
  Age: 68 Year
  Sex: Female

DRUGS (1)
  1. REVLIMID (LENALIDOMIDE) (25 MILLIGRAM, CAPSULES) [Suspect]
     Indication: PLASMA CELL MYELOMA
     Dosage: 25 MG, DAILY FOR 14 DAYS ON AND 7 DAYS OFF, PO
     Route: 048
     Dates: start: 201112

REACTIONS (7)
  - Swelling face [None]
  - Oedema peripheral [None]
  - Drug dose omission [None]
  - Insomnia [None]
  - Rash macular [None]
  - Nasopharyngitis [None]
  - Feeling cold [None]
